FAERS Safety Report 9385924 (Version 1)
Quarter: 2013Q3

REPORT INFORMATION
  Report Type: Spontaneous
  Country: US (occurrence: US)
  Receive Date: 20130705
  Receipt Date: 20130705
  Transmission Date: 20140515
  Serious: No
  Sender: FDA-Public Use
  Company Number: US-009507513-1306USA014220

PATIENT
  Age: 29 Year
  Sex: Female

DRUGS (1)
  1. IMPLANON [Suspect]
     Indication: CONTRACEPTION
     Dosage: 1 ROD FOR 3 YEARS
     Route: 059
     Dates: start: 20130425

REACTIONS (6)
  - Limb discomfort [Unknown]
  - Mobility decreased [Unknown]
  - Amenorrhoea [Unknown]
  - Depression [Unknown]
  - Mood swings [Unknown]
  - Hypoaesthesia [Unknown]
